FAERS Safety Report 16199510 (Version 2)
Quarter: 2019Q2

REPORT INFORMATION
  Report Type: Report from Study
  Country: TW (occurrence: TW)
  Receive Date: 20190415
  Receipt Date: 20190425
  Transmission Date: 20190711
  Serious: Yes (Other)
  Sender: FDA-Public Use
  Company Number: PHHY2019TW086061

PATIENT
  Age: 86 Year
  Sex: Male

DRUGS (10)
  1. ALPRAZOLAM. [Concomitant]
     Active Substance: ALPRAZOLAM
     Indication: PROPHYLAXIS
     Dosage: 0.5 MG, UNK
     Route: 048
     Dates: start: 20180220, end: 20180220
  2. TASIGNA [Suspect]
     Active Substance: NILOTINIB
     Dosage: 2 DF (150 MG), BID
     Route: 048
     Dates: start: 20180202
  3. PIPERACILLIN. [Concomitant]
     Active Substance: PIPERACILLIN SODIUM
     Indication: PNEUMONIA
     Dosage: 4.5 G, UNK
     Dates: start: 20180204, end: 20180204
  4. RHIN [Concomitant]
     Indication: PROPHYLAXIS
     Dosage: 1 DF, UNK
     Route: 048
     Dates: start: 20180204, end: 20180204
  5. PIPERACILLIN. [Concomitant]
     Active Substance: PIPERACILLIN SODIUM
     Dosage: 3.375 MG, UNK
     Route: 042
     Dates: start: 20180213, end: 20180220
  6. ZOPICLONE [Concomitant]
     Active Substance: ZOPICLONE
     Indication: PROPHYLAXIS
     Dosage: 7.5 MG, UNK
     Route: 048
     Dates: start: 20180207, end: 20180307
  7. TASIGNA [Suspect]
     Active Substance: NILOTINIB
     Indication: CHRONIC MYELOID LEUKAEMIA
     Dosage: 2 DF (150 MG), BID
     Route: 048
     Dates: start: 20151202
  8. NEOMYCIN. [Concomitant]
     Active Substance: NEOMYCIN
     Indication: PROPHYLAXIS
     Dosage: UNK, BID
     Route: 061
     Dates: start: 20180210, end: 20180223
  9. PIPERACILLIN. [Concomitant]
     Active Substance: PIPERACILLIN SODIUM
     Dosage: 2.25 MG, UNK
     Route: 042
     Dates: start: 20180205, end: 20180207
  10. COMBIVENT [Concomitant]
     Active Substance: ALBUTEROL SULFATE\IPRATROPIUM BROMIDE
     Indication: PNEUMONIA
     Dosage: 1 DF, UNK
     Route: 055
     Dates: start: 20180204, end: 20180204

REACTIONS (1)
  - Atrial fibrillation [Recovering/Resolving]

NARRATIVE: CASE EVENT DATE: 20180204
